FAERS Safety Report 4621172-X (Version None)
Quarter: 2005Q1

REPORT INFORMATION
  Report Type: 
  Country: None (occurrence: None)
  Receive Date: 20050328
  Receipt Date: 20050316
  Transmission Date: 20050727
  Serious: Yes (Life-Threatening, Hospitalization, Other)
  Sender: FDA-Public Use
  Company Number: 2005-03-1042

PATIENT
  Age: 53 Year
  Sex: Female

DRUGS (1)
  1. FLUITRAN TABLETS [Suspect]
     Indication: HYPERTENSION
     Dosage: 4 MG QD ORAL
     Route: 048
     Dates: start: 20050222, end: 20050223

REACTIONS (5)
  - BLOOD CREATINE PHOSPHOKINASE INCREASED [None]
  - CONVULSION [None]
  - DEPRESSED LEVEL OF CONSCIOUSNESS [None]
  - HYPONATRAEMIA [None]
  - RESPIRATORY ARREST [None]
